FAERS Safety Report 25253555 (Version 1)
Quarter: 2025Q2

REPORT INFORMATION
  Report Type: Spontaneous
  Country: MY (occurrence: MY)
  Receive Date: 20250430
  Receipt Date: 20250430
  Transmission Date: 20250716
  Serious: Yes (Death, Hospitalization, Other)
  Sender: DR REDDYS
  Company Number: MY-RDY-MYS/2025/04/006264

PATIENT
  Age: 55 Year
  Sex: Male

DRUGS (7)
  1. AZACITIDINE [Suspect]
     Active Substance: AZACITIDINE
     Indication: Myelodysplastic syndrome
     Dates: start: 202109
  2. PIPERACILLIN SODIUM\TAZOBACTAM SODIUM [Concomitant]
     Active Substance: PIPERACILLIN SODIUM\TAZOBACTAM SODIUM
     Indication: Febrile infection
  3. MEROPENEM [Concomitant]
     Active Substance: MEROPENEM
     Indication: Febrile infection
  4. CIPROFLOXACIN [Concomitant]
     Active Substance: CIPROFLOXACIN
     Indication: Febrile infection
  5. FLUCONAZOLE [Concomitant]
     Active Substance: FLUCONAZOLE
     Indication: Febrile infection
  6. CASPOFUNGIN [Concomitant]
     Active Substance: CASPOFUNGIN
     Indication: Febrile infection
  7. VORICONAZOLE [Concomitant]
     Active Substance: VORICONAZOLE
     Indication: Febrile infection

REACTIONS (1)
  - Strongyloidiasis [Fatal]
